FAERS Safety Report 7961816-8 (Version None)
Quarter: 2011Q4

REPORT INFORMATION
  Report Type: 
  Country: None (occurrence: None)
  Receive Date: 20111207
  Receipt Date: 20111207
  Transmission Date: 20120403
  Serious: No
  Sender: FDA-Public Use
  Company Number: None

PATIENT
  Age: 29 Year
  Sex: Male
  Weight: 68 kg

DRUGS (1)
  1. PROPECIA [Suspect]
     Indication: ALOPECIA
     Dosage: 1 MG
     Route: 048
     Dates: start: 20070501, end: 20080301

REACTIONS (4)
  - LIBIDO DECREASED [None]
  - EYES SUNKEN [None]
  - EMOTIONAL DISTRESS [None]
  - DISTURBANCE IN SOCIAL BEHAVIOUR [None]
